FAERS Safety Report 19689892 (Version 8)
Quarter: 2021Q4

REPORT INFORMATION
  Report Type: Spontaneous
  Country: US (occurrence: US)
  Receive Date: 20210811
  Receipt Date: 20211026
  Transmission Date: 20220303
  Serious: Yes (Hospitalization)
  Sender: FDA-Public Use
  Company Number: US-CELGENE-USA-20210801825

PATIENT
  Age: 77 Year
  Sex: Female

DRUGS (2)
  1. REVLIMID [Suspect]
     Active Substance: LENALIDOMIDE
     Indication: Diffuse large B-cell lymphoma
     Dosage: 20 MILLIGRAM
     Route: 048
     Dates: start: 20210616, end: 202107
  2. REVLIMID [Suspect]
     Active Substance: LENALIDOMIDE
     Indication: Off label use

REACTIONS (4)
  - Seizure [Unknown]
  - Condition aggravated [Unknown]
  - Thrombosis [Unknown]
  - Thrombocytopenia [Unknown]

NARRATIVE: CASE EVENT DATE: 20210101
